FAERS Safety Report 6772938-1 (Version None)
Quarter: 2010Q2

REPORT INFORMATION
  Report Type: 
  Country: None (occurrence: None)
  Receive Date: 20100616
  Receipt Date: 20100608
  Transmission Date: 20101027
  Serious: Yes (Other)
  Sender: FDA-Public Use
  Company Number: US-PFIZER INC-2010072277

PATIENT
  Sex: Male
  Weight: 90.703 kg

DRUGS (2)
  1. TOVIAZ [Suspect]
     Indication: HYPERTONIC BLADDER
     Dosage: 4 MG, 3X/DAY
     Route: 048
     Dates: start: 20100401
  2. EXELON [Concomitant]
     Dosage: 4.5 MG, 1X/DAY

REACTIONS (2)
  - FAECES DISCOLOURED [None]
  - VISUAL IMPAIRMENT [None]
